FAERS Safety Report 5089957-6 (Version None)
Quarter: 2006Q3

REPORT INFORMATION
  Report Type: 
  Country: None (occurrence: None)
  Receive Date: 20060828
  Receipt Date: 20050321
  Transmission Date: 20061208
  Serious: Yes (Death, Hospitalization)
  Sender: FDA-Public Use
  Company Number: US-BRISTOL-MYERS SQUIBB COMPANY-12906566

PATIENT
  Age: 42 Year
  Sex: Male

DRUGS (8)
  1. CISPLATIN [Suspect]
     Indication: GASTROOESOPHAGEAL CANCER
     Route: 042
     Dates: start: 20041104, end: 20041104
  2. COMPAZINE [Concomitant]
     Indication: NAUSEA
     Route: 048
     Dates: start: 20041104, end: 20041107
  3. IMODIUM [Concomitant]
     Indication: DIARRHOEA
     Route: 048
     Dates: start: 20041114, end: 20041115
  4. LOMOTIL [Concomitant]
     Indication: DIARRHOEA
     Route: 048
     Dates: start: 20041116, end: 20041129
  5. SANDOSTATIN [Concomitant]
     Indication: DIARRHOEA
     Route: 048
     Dates: start: 20041117, end: 20041117
  6. MAGIC MOUTHWASH [Concomitant]
     Indication: MUCOSAL INFLAMMATION
     Route: 048
     Dates: start: 20041118, end: 20041129
  7. MAGIC MOUTHWASH [Concomitant]
     Indication: STOMATITIS
     Route: 048
     Dates: start: 20041118, end: 20041129
  8. THORAZINE [Concomitant]
     Indication: HICCUPS
     Route: 048
     Dates: start: 20041125, end: 20041128

REACTIONS (12)
  - AGITATION [None]
  - ASTHENIA [None]
  - DEHYDRATION [None]
  - DIARRHOEA [None]
  - DYSPHAGIA [None]
  - HYPOTENSION [None]
  - MALNUTRITION [None]
  - METABOLIC ACIDOSIS [None]
  - OESOPHAGITIS [None]
  - RENAL FAILURE [None]
  - STOMATITIS [None]
  - WEIGHT DECREASED [None]
